FAERS Safety Report 12199858 (Version 1)
Quarter: 2016Q1

REPORT INFORMATION
  Report Type: Report from Study
  Country: BR (occurrence: BR)
  Receive Date: 20160322
  Receipt Date: 20160322
  Transmission Date: 20160526
  Serious: Yes (Other)
  Sender: FDA-Public Use
  Company Number: BR-ABBVIE-16K-020-1586725-00

PATIENT
  Sex: Female

DRUGS (1)
  1. HUMIRA [Suspect]
     Active Substance: ADALIMUMAB
     Indication: ANKYLOSING SPONDYLITIS
     Route: 058
     Dates: start: 20110501

REACTIONS (4)
  - Dengue fever [Recovering/Resolving]
  - Pain [Not Recovered/Not Resolved]
  - Diabetic glaucoma [Recovered/Resolved]
  - Blindness unilateral [Not Recovered/Not Resolved]
